FAERS Safety Report 9649686 (Version 1)
Quarter: 2013Q4

REPORT INFORMATION
  Report Type: Spontaneous
  Country: GB (occurrence: GB)
  Receive Date: 20131028
  Receipt Date: 20131028
  Transmission Date: 20140711
  Serious: Yes (Disabling, Other)
  Sender: FDA-Public Use
  Company Number: PHHY2013GB118385

PATIENT
  Age: 51 Year
  Sex: Female
  Weight: 71 kg

DRUGS (9)
  1. CLARITHROMYCIN [Suspect]
     Indication: LOWER RESPIRATORY TRACT INFECTION
     Dosage: 500 MG, BID
     Route: 048
     Dates: start: 20130508, end: 20130509
  2. AMITRIPTYLINE [Suspect]
     Indication: RHEUMATOID ARTHRITIS
     Dosage: 20 MG, QD
     Route: 048
     Dates: start: 20130503
  3. CETIRIZINE [Concomitant]
     Indication: SEASONAL ALLERGY
     Dosage: 10 MG, QD
     Route: 048
     Dates: start: 20050503
  4. SALBUTAMOL [Concomitant]
     Indication: ASTHMA
     Dosage: 2 DF, 2 PUFFS WHEN REQUIRED
     Route: 055
     Dates: start: 20050503
  5. TRAMADOL [Concomitant]
     Indication: RHEUMATOID ARTHRITIS
     Dosage: 50 MG, QID
     Route: 048
     Dates: start: 20070530
  6. PEPPERMINT OIL [Concomitant]
     Indication: IRRITABLE BOWEL SYNDROME
     Dosage: 1 DF, TID
     Route: 048
     Dates: start: 20120720
  7. MONTELUKAST [Concomitant]
     Indication: ASTHMA
     Dosage: 10 MG, QD
     Route: 048
     Dates: start: 20121118
  8. LEFLUNOMIDE [Concomitant]
     Indication: RHEUMATOID ARTHRITIS
     Dosage: 10 MG, QD
     Route: 048
     Dates: start: 20130408
  9. BECONASE [Concomitant]
     Indication: SEASONAL ALLERGY
     Dosage: 1 DF, BID ONE PUFF
     Route: 045
     Dates: start: 20130225

REACTIONS (1)
  - Syncope [Recovered/Resolved]
